FAERS Safety Report 24368128 (Version 3)
Quarter: 2024Q4

REPORT INFORMATION
  Report Type: Spontaneous
  Country: AR (occurrence: AR)
  Receive Date: 20240926
  Receipt Date: 20241205
  Transmission Date: 20250115
  Serious: No
  Sender: PFIZER
  Company Number: AR-PFIZER INC-202400262844

PATIENT
  Age: 12 Year
  Sex: Female

DRUGS (1)
  1. GENOTROPIN [Suspect]
     Active Substance: SOMATROPIN
     Indication: Foetal growth restriction
     Dosage: 1.6 MG, DAILY
     Dates: start: 20220110

REACTIONS (3)
  - Device environmental compatibility issue [Unknown]
  - Device defective [Recovered/Resolved]
  - Blood insulin increased [Unknown]

NARRATIVE: CASE EVENT DATE: 20240901
